FAERS Safety Report 6970143-7 (Version None)
Quarter: 2010Q3

REPORT INFORMATION
  Report Type: 
  Country: None (occurrence: None)
  Receive Date: 20100903
  Receipt Date: 20100827
  Transmission Date: 20110219
  Serious: Yes (Disabling)
  Sender: FDA-Public Use
  Company Number: OSCN-NO-0901S-0031

PATIENT
  Age: 36 Year
  Sex: Female
  Weight: 65 kg

DRUGS (8)
  1. OMNISCAN [Suspect]
     Indication: PRODUCT USED FOR UNKNOWN INDICATION
     Dosage: 30 ML, SINGLE DOSE, I.V.; 40 ML, SINGLE DOSE, I.V.
     Route: 042
     Dates: start: 20010530, end: 20010530
  2. OMNISCAN [Suspect]
     Indication: PRODUCT USED FOR UNKNOWN INDICATION
     Dosage: 30 ML, SINGLE DOSE, I.V.; 40 ML, SINGLE DOSE, I.V.
     Route: 042
     Dates: start: 20020930, end: 20020930
  3. MEGLUMINE GADOTERATE (DOTAREM) [Concomitant]
  4. EPOETIN BETA (NEORECORMON) [Concomitant]
  5. RAMIPRIL [Concomitant]
  6. ISRADIPINE (LOMIR) [Concomitant]
  7. VITAMINS (DILYSIS VITAMINS) [Concomitant]
  8. INSULIN [Concomitant]

REACTIONS (11)
  - DRUG INTERACTION [None]
  - GAIT DISTURBANCE [None]
  - IMPAIRED HEALING [None]
  - LIVER DISORDER [None]
  - MITRAL VALVE INCOMPETENCE [None]
  - OSTEOPOROSIS [None]
  - PULMONARY FUNCTION TEST ABNORMAL [None]
  - RESTLESS LEGS SYNDROME [None]
  - SUNBURN [None]
  - TOE AMPUTATION [None]
  - URTICARIA [None]
